FAERS Safety Report 10673563 (Version 1)
Quarter: 2014Q4

REPORT INFORMATION
  Report Type: Spontaneous
  Country: US (occurrence: None)
  Receive Date: 20141222
  Receipt Date: 20141222
  Transmission Date: 20150529
  Serious: Yes (Hospitalization)
  Sender: FDA-Public Use
  Company Number: None

PATIENT

DRUGS (1)
  1. PROTAMINE [Suspect]
     Active Substance: PROTAMINE

REACTIONS (3)
  - Product quality issue [None]
  - Respiratory disorder [None]
  - Haemodynamic instability [None]
